FAERS Safety Report 9141350 (Version 1)
Quarter: 2013Q1

REPORT INFORMATION
  Report Type: Spontaneous
  Country: US (occurrence: US)
  Receive Date: 20130305
  Receipt Date: 20130305
  Transmission Date: 20140127
  Serious: No
  Sender: FDA-Public Use
  Company Number: US-AMGEN-USASP2013007762

PATIENT
  Age: 55 Year
  Sex: Female
  Weight: 69.39 kg

DRUGS (15)
  1. ENBREL [Suspect]
     Indication: RHEUMATOID ARTHRITIS
     Dosage: 50 MG, QWK
     Route: 058
     Dates: start: 20130109, end: 20130201
  2. ORPHENADRINE [Concomitant]
     Dosage: 100 MG, UNK, CR
  3. DICLOFENAC [Concomitant]
     Dosage: 50 MG, UNK
  4. ALENDRONATE [Concomitant]
     Dosage: 70 MG, UNK
  5. ASPIRIN LOW [Concomitant]
     Dosage: 81 MG, UNK
  6. BLACK COHOSH                       /01456801/ [Concomitant]
     Dosage: 540 MG, UNK
  7. FISH OIL [Concomitant]
     Dosage: 1000 MG, UNK
  8. FOLIC ACID [Concomitant]
     Dosage: 1 MG, UNK
  9. GABAPENTIN [Concomitant]
     Dosage: 100 MG, UNK
  10. GINKGO BILOBA [Concomitant]
     Dosage: 100 MG, UNK
  11. HYDROXYZINE HCL [Concomitant]
     Dosage: 25 MG, UNK
  12. LIPITOR [Concomitant]
     Dosage: 40 MG, UNK
  13. NASACORT AQ [Concomitant]
     Dosage: 55 MUG, UNK
  14. OMEPRAZOLE [Concomitant]
     Dosage: 10 MG, UNK
  15. VITAMIN D /00107901/ [Concomitant]
     Dosage: 400 UNIT, UNK

REACTIONS (1)
  - Herpes zoster [Recovered/Resolved]
